FAERS Safety Report 18086426 (Version 1)
Quarter: 2020Q3

REPORT INFORMATION
  Report Type: Spontaneous
  Country: JP (occurrence: JP)
  Receive Date: 20200729
  Receipt Date: 20200729
  Transmission Date: 20201103
  Serious: Yes (Hospitalization, Other)
  Sender: FDA-Public Use
  Company Number: JP-ACCORD-193181

PATIENT
  Age: 62 Year
  Sex: Male

DRUGS (3)
  1. IGURATIMOD [Concomitant]
     Active Substance: IGURATIMOD
  2. METHOTREXATE. [Suspect]
     Active Substance: METHOTREXATE
     Indication: RHEUMATOID ARTHRITIS
  3. BUCILLAMINE [Concomitant]
     Active Substance: BUCILLAMINE

REACTIONS (2)
  - Hepatic atrophy [Recovering/Resolving]
  - Ascites [Recovered/Resolved]
